FAERS Safety Report 18321533 (Version 1)
Quarter: 2020Q3

REPORT INFORMATION
  Report Type: Spontaneous
  Country: IL (occurrence: IL)
  Receive Date: 20200928
  Receipt Date: 20200928
  Transmission Date: 20201103
  Serious: Yes (Other)
  Sender: FDA-Public Use
  Company Number: IL-AMNEAL PHARMACEUTICALS-2020-AMRX-02969

PATIENT

DRUGS (2)
  1. TEMOZOLOMIDE. [Suspect]
     Active Substance: TEMOZOLOMIDE
     Dosage: MONTHY, 150?200 MG/M2 FOR 5 DAYS
     Route: 065
     Dates: start: 2017
  2. TEMOZOLOMIDE. [Suspect]
     Active Substance: TEMOZOLOMIDE
     Indication: GLIOBLASTOMA
     Dosage: 75 MILLIGRAM/SQ. METER, DAILY
     Route: 065
     Dates: start: 2017

REACTIONS (1)
  - Decubitus ulcer [Unknown]
